FAERS Safety Report 24332201 (Version 2)
Quarter: 2024Q4

REPORT INFORMATION
  Report Type: Spontaneous
  Country: US (occurrence: US)
  Receive Date: 20240918
  Receipt Date: 20241008
  Transmission Date: 20250115
  Serious: No
  Sender: ABBVIE
  Company Number: US-ABBVIE-5920490

PATIENT
  Sex: Female

DRUGS (1)
  1. RINVOQ [Suspect]
     Active Substance: UPADACITINIB
     Indication: Dermatitis atopic
     Dosage: DURATION TEXT: EARLY 2023 (A YEAR AND A HALF AGO)
     Route: 048
     Dates: start: 2023

REACTIONS (1)
  - Maternal exposure during pregnancy [Unknown]
